FAERS Safety Report 9928910 (Version 1)
Quarter: 2014Q1

REPORT INFORMATION
  Report Type: Spontaneous
  Country: CN (occurrence: None)
  Receive Date: 20140221
  Receipt Date: 20140221
  Transmission Date: 20141002
  Serious: Yes (Death)
  Sender: FDA-Public Use
  Company Number: 2186897

PATIENT
  Age: 45 Year
  Sex: Male

DRUGS (3)
  1. PACLITAXEL [Suspect]
     Indication: NON-SMALL CELL LUNG CANCER
     Dosage: 175 MG/M 2 MILLIGRAM(S)/SQ. METER ( 1 WEEK )?
     Route: 041
  2. (CARBOPLATIN) [Suspect]
     Indication: NON-SMALL CELL LUNG CANCER
     Dosage: AREA UNDER THE CURVE = 6.0 ( 1 WEEK ) ) INTRAVENOUS DRIP
     Route: 041
  3. BEVACIZUMAB [Suspect]
     Indication: NON-SMALL CELL LUNG CANCER
     Dosage: 15 MG/KG MILLIGRAM(S)/KILOGRAM ( 1 WEEK )

REACTIONS (4)
  - Haemoptysis [None]
  - Lung abscess [None]
  - Therapeutic response decreased [None]
  - Respiratory failure [None]
